FAERS Safety Report 24740851 (Version 1)
Quarter: 2024Q4

REPORT INFORMATION
  Report Type: Spontaneous
  Country: US (occurrence: None)
  Receive Date: 20241217
  Receipt Date: 20241217
  Transmission Date: 20250115
  Serious: No
  Sender: SUPERNUS PHARMACEUTICALS, INC.
  Company Number: US-SUPERNUS Pharmaceuticals, Inc.-SUP202410-003936

PATIENT
  Age: 42 Year
  Sex: Female

DRUGS (3)
  1. TROKENDI XR [Suspect]
     Active Substance: TOPIRAMATE
     Indication: Vestibular migraine
     Dosage: ONCE A DAY
  2. TROKENDI XR [Suspect]
     Active Substance: TOPIRAMATE
     Dosage: NOT PROVIDED
  3. TROKENDI XR [Suspect]
     Active Substance: TOPIRAMATE
     Dosage: ONCE A DAY
     Dates: start: 20240822

REACTIONS (4)
  - Illness [Unknown]
  - Product use issue [Unknown]
  - Inability to afford medication [Unknown]
  - Product dose omission issue [Unknown]

NARRATIVE: CASE EVENT DATE: 20241015
